FAERS Safety Report 5749423-9 (Version None)
Quarter: 2008Q2

REPORT INFORMATION
  Report Type: 
  Country: None (occurrence: None)
  Receive Date: 20080521
  Receipt Date: 20080521
  Transmission Date: 20081010
  Serious: No
  Sender: FDA-Public Use
  Company Number: None

PATIENT
  Age: 27 Year
  Sex: Male
  Weight: 68.0396 kg

DRUGS (3)
  1. COREG [Suspect]
     Indication: ARRHYTHMIA
     Dosage: 12.5MG TWICE DAILY BY MOUTH
     Route: 048
     Dates: start: 20080323
  2. DIGOXIN [Concomitant]
  3. ALDACTONE [Concomitant]

REACTIONS (1)
  - SUPRAVENTRICULAR TACHYCARDIA [None]
